FAERS Safety Report 7458130-6 (Version None)
Quarter: 2011Q2

REPORT INFORMATION
  Report Type: 
  Country: None (occurrence: None)
  Receive Date: 20110504
  Receipt Date: 20110426
  Transmission Date: 20111010
  Serious: Yes (Hospitalization, Other)
  Sender: FDA-Public Use
  Company Number: PHFR2010GB03802

PATIENT
  Sex: Male

DRUGS (6)
  1. CLOZARIL [Suspect]
     Dosage: UNK MG, QD
     Route: 048
  2. CLOZARIL [Suspect]
     Indication: SCHIZOPHRENIA
     Dosage: 175 MG, QD
     Route: 048
     Dates: start: 20080901
  3. LAMOTRIGINE [Concomitant]
  4. VALPROATE SODIUM [Concomitant]
  5. SELECTIVE SEROTONIN REUPTAKE INHIBITORS [Concomitant]
  6. VITAMINS [Concomitant]

REACTIONS (9)
  - MENTAL DISORDER [None]
  - SCHIZOPHRENIA [None]
  - APHAGIA [None]
  - PARANOIA [None]
  - CONVULSION [None]
  - CATATONIA [None]
  - MALAISE [None]
  - MUTISM [None]
  - EPILEPSY [None]
